FAERS Safety Report 8213426-5 (Version None)
Quarter: 2012Q1

REPORT INFORMATION
  Report Type: 
  Country: None (occurrence: None)
  Receive Date: 20120315
  Receipt Date: 20120302
  Transmission Date: 20120608
  Serious: Yes (Hospitalization)
  Sender: FDA-Public Use
  Company Number: JP-ROCHE-680309

PATIENT
  Sex: Male

DRUGS (29)
  1. DEXAMETHASONE PALMITATE [Suspect]
     Indication: JUVENILE ARTHRITIS
     Dosage: DOSE:10.0 MG PER DAY
     Route: 042
     Dates: start: 20091222, end: 20091228
  2. DEXAMETHASONE PALMITATE [Suspect]
     Dosage: DOSE:REDUCED TO 5.0 MG PER DAY
     Route: 042
     Dates: start: 20091229, end: 20091230
  3. PREDNISOLONE [Suspect]
     Route: 048
     Dates: start: 20100201, end: 20100214
  4. NEORAL [Concomitant]
     Route: 048
     Dates: start: 20100102, end: 20100314
  5. PREDNISOLONE [Suspect]
     Route: 048
     Dates: start: 20100301, end: 20100425
  6. PREDNISOLONE [Suspect]
     Route: 048
     Dates: start: 20100426, end: 20100516
  7. PREDNISOLONE [Suspect]
     Route: 048
     Dates: start: 20100911, end: 20101024
  8. NEORAL [Concomitant]
     Dosage: DOSE FORM: PERORAL AGENT.
     Route: 048
  9. PROGRAF [Concomitant]
     Dosage: DOSE FORM: PERORAL AGENT; INFUSION RATE DECREASED
     Route: 048
     Dates: start: 20100412, end: 20110124
  10. ACTEMRA [Suspect]
     Indication: JUVENILE ARTHRITIS
     Route: 041
     Dates: start: 20091207, end: 20091222
  11. PREDNISOLONE [Suspect]
     Route: 048
     Dates: start: 20100809, end: 20100905
  12. LANSOPRAZOLE [Concomitant]
     Route: 048
  13. PREDNISOLONE [Suspect]
     Route: 048
     Dates: start: 20101025, end: 20101121
  14. PREDNISOLONE [Suspect]
     Route: 048
     Dates: start: 20101122, end: 20110124
  15. PROGRAF [Concomitant]
     Dosage: DOSE FORM: PERORAL AGENT
     Route: 048
     Dates: start: 20100329, end: 20100411
  16. PREDNISOLONE [Suspect]
     Route: 048
     Dates: start: 20090101, end: 20091228
  17. PREDNISOLONE [Suspect]
     Route: 048
     Dates: start: 20100517, end: 20100613
  18. ENALAPRIL MALEATE [Concomitant]
     Route: 048
  19. URSO 250 [Concomitant]
     Dosage: DOSE FORM: PERORAL AGENT.
     Route: 048
  20. SANDIMMUNE [Concomitant]
     Indication: HISTIOCYTOSIS HAEMATOPHAGIC
     Route: 042
     Dates: start: 20091222, end: 20091227
  21. PREDNISOLONE [Suspect]
     Indication: JUVENILE ARTHRITIS
     Route: 048
  22. PREDNISOLONE [Suspect]
     Route: 048
     Dates: start: 20091229, end: 20100117
  23. PREDNISOLONE [Suspect]
     Route: 048
     Dates: start: 20100614, end: 20100807
  24. NEORAL [Concomitant]
     Route: 048
     Dates: start: 20091228, end: 20100101
  25. PROGRAF [Concomitant]
     Dosage: DOSE FORM: PERORAL AGENT
     Route: 048
     Dates: start: 20100315, end: 20100328
  26. PREDNISOLONE [Suspect]
     Route: 048
     Dates: start: 20100118, end: 20100131
  27. PREDNISOLONE [Suspect]
     Route: 048
     Dates: start: 20100215, end: 20100228
  28. PREDNISOLONE [Suspect]
     Route: 048
     Dates: start: 20100906, end: 20100910
  29. TOWARAT-L [Concomitant]
     Dosage: DOSE FORM: SUSTAINED-RELEASE TABLET
     Route: 048

REACTIONS (4)
  - HISTIOCYTOSIS HAEMATOPHAGIC [None]
  - HYPERTENSIVE ENCEPHALOPATHY [None]
  - OSTEOPOROSIS [None]
  - JUVENILE ARTHRITIS [None]
